APPROVED DRUG PRODUCT: PIROXICAM
Active Ingredient: PIROXICAM
Strength: 20MG
Dosage Form/Route: CAPSULE;ORAL
Application: A209256 | Product #002
Applicant: HIKMA PHARMACEUTICALS LLC
Approved: Aug 11, 2017 | RLD: No | RS: No | Type: DISCN